FAERS Safety Report 5149798-8 (Version None)
Quarter: 2006Q4

REPORT INFORMATION
  Report Type: 
  Country: None (occurrence: None)
  Receive Date: 20061108
  Receipt Date: 20061103
  Transmission Date: 20070319
  Serious: Yes (Hospitalization)
  Sender: FDA-Public Use
  Company Number: 2006SP003775

PATIENT
  Age: 68 Year
  Sex: Female
  Weight: 55.3388 kg

DRUGS (11)
  1. XOPENEX [Suspect]
     Indication: CHRONIC OBSTRUCTIVE PULMONARY DISEASE
     Dosage: 1.25 MG/3ML; TID; INHALATION - SEE IMAGE
     Route: 055
     Dates: start: 20010101, end: 20060101
  2. XOPENEX [Suspect]
     Indication: CHRONIC OBSTRUCTIVE PULMONARY DISEASE
     Dosage: 1.25 MG/3ML; TID; INHALATION - SEE IMAGE
     Route: 055
     Dates: start: 20060101, end: 20060801
  3. XOPENEX [Suspect]
     Indication: CHRONIC OBSTRUCTIVE PULMONARY DISEASE
     Dosage: 1.25 MG/3ML; TID; INHALATION - SEE IMAGE
     Route: 055
     Dates: start: 20060801
  4. ATROVENT [Concomitant]
  5. OXYGEN [Concomitant]
  6. METOPROLOL [Concomitant]
  7. LISINOPRIL [Concomitant]
  8. LASIX [Concomitant]
  9. ACTONEL [Concomitant]
  10. PULMICORT [Concomitant]
  11. PREDNISONE TAB [Concomitant]

REACTIONS (3)
  - CHRONIC OBSTRUCTIVE PULMONARY DISEASE [None]
  - CONDITION AGGRAVATED [None]
  - UPPER RESPIRATORY TRACT INFECTION [None]
